FAERS Safety Report 15076422 (Version 4)
Quarter: 2018Q4

REPORT INFORMATION
  Report Type: Spontaneous
  Country: CA (occurrence: CA)
  Receive Date: 20180627
  Receipt Date: 20181018
  Transmission Date: 20190204
  Serious: Yes (Hospitalization)
  Sender: FDA-Public Use
  Company Number: CA-CELLTRION INC.-2018CA020209

PATIENT

DRUGS (8)
  1. ASA [Concomitant]
     Active Substance: ASPIRIN
  2. IRON [Concomitant]
     Active Substance: IRON
     Dosage: UNK
  3. INFLECTRA [Suspect]
     Active Substance: INFLIXIMAB-DYYB
     Dosage: 5 MG/KG, CYCLIC (EVERY 8 WEEKS)
     Route: 042
     Dates: start: 20180808
  4. INFLECTRA [Suspect]
     Active Substance: INFLIXIMAB-DYYB
     Dosage: 10 MG/KG, CYCLIC (WEEKS 0, 2, 6 THEN EVERY 8 WEEKS)
     Route: 042
     Dates: start: 20180614
  5. SYNTHROID [Concomitant]
     Active Substance: LEVOTHYROXINE SODIUM
     Dosage: UNK
  6. INFLECTRA [Suspect]
     Active Substance: INFLIXIMAB-DYYB
     Dosage: 625 MG/ CYCLIC 0,2,6 WEEKS, THEN EVERY 8 WEEKS
     Route: 042
     Dates: start: 20180517
  7. INFLECTRA [Suspect]
     Active Substance: INFLIXIMAB-DYYB
     Indication: COLITIS ULCERATIVE
     Dosage: 10 MG/KG, CYCLIC (WEEKS 0, 2, 6 THEN EVERY 8 WEEKS)
     Route: 042
     Dates: start: 20180504
  8. TIAZAC [Concomitant]
     Active Substance: DILTIAZEM HYDROCHLORIDE
     Dosage: UNK

REACTIONS (11)
  - Blepharitis [Unknown]
  - Prescribed overdose [Unknown]
  - Cough [Unknown]
  - Pneumonia [Recovered/Resolved]
  - Weight increased [Unknown]
  - Oropharyngeal pain [Unknown]
  - Product use issue [Unknown]
  - Blood pressure fluctuation [Unknown]
  - Oedema [Recovering/Resolving]
  - Condition aggravated [Unknown]
  - Sputum discoloured [Unknown]

NARRATIVE: CASE EVENT DATE: 20180504
